FAERS Safety Report 10153358 (Version 5)
Quarter: 2014Q3

REPORT INFORMATION
  Report Type: Report from Study
  Country: BR (occurrence: BR)
  Receive Date: 20140505
  Receipt Date: 20140801
  Transmission Date: 20150326
  Serious: Yes (Other)
  Sender: FDA-Public Use
  Company Number: BR-US-EMD SERONO, INC.-7277653

PATIENT
  Age: 35 Year
  Sex: Female

DRUGS (2)
  1. REBIF [Suspect]
     Active Substance: INTERFERON BETA-1A
     Indication: RELAPSING-REMITTING MULTIPLE SCLEROSIS
     Dates: start: 20140303, end: 20140721
  2. REBIF [Suspect]
     Active Substance: INTERFERON BETA-1A
     Dates: start: 20140723

REACTIONS (16)
  - Hepatic enzyme abnormal [Unknown]
  - Vomiting [Unknown]
  - Somnolence [Not Recovered/Not Resolved]
  - Gamma-glutamyltransferase abnormal [Unknown]
  - Menstruation delayed [Recovered/Resolved]
  - Hypomenorrhoea [Recovered/Resolved]
  - Malaise [Unknown]
  - Heat stroke [Unknown]
  - Labyrinthitis [Recovered/Resolved]
  - Nausea [Unknown]
  - Decreased appetite [Unknown]
  - Influenza like illness [Not Recovered/Not Resolved]
  - Rhinitis [Unknown]
  - Apathy [Not Recovered/Not Resolved]
  - Breast pain [Recovered/Resolved]
  - Asthma [Recovering/Resolving]

NARRATIVE: CASE EVENT DATE: 201403
